FAERS Safety Report 4633032-9 (Version None)
Quarter: 2005Q2

REPORT INFORMATION
  Report Type: 
  Country: None (occurrence: None)
  Receive Date: 20050412
  Receipt Date: 20050331
  Transmission Date: 20051028
  Serious: Yes (Hospitalization, Other)
  Sender: FDA-Public Use
  Company Number: US-BRISTOL-MYERS SQUIBB COMPANY-12916458

PATIENT
  Sex: Female

DRUGS (1)
  1. COUMADIN [Suspect]
     Indication: HEART VALVE REPLACEMENT
     Route: 048
     Dates: start: 20041201

REACTIONS (5)
  - BLUE TOE SYNDROME [None]
  - EPISTAXIS [None]
  - INTERNATIONAL NORMALISED RATIO ABNORMAL [None]
  - PLATELET COUNT DECREASED [None]
  - PROTHROMBIN TIME ABNORMAL [None]
